FAERS Safety Report 4920567-4 (Version None)
Quarter: 2006Q1

REPORT INFORMATION
  Report Type: 
  Country: None (occurrence: None)
  Receive Date: 20060217
  Receipt Date: 20060203
  Transmission Date: 20060701
  Serious: Yes (Hospitalization)
  Sender: FDA-Public Use
  Company Number: US016796

PATIENT
  Age: 41 Year
  Sex: Female
  Weight: 63.5036 kg

DRUGS (6)
  1. MODAFINIL [Suspect]
     Indication: DRUG DEPENDENCE
     Dates: start: 20050907, end: 20051127
  2. PLACEBO [Suspect]
     Indication: DRUG DEPENDENCE
     Dates: start: 20050907, end: 20051127
  3. MULTIVITAMIN [Concomitant]
  4. TYLENOL (CAPLET) [Concomitant]
  5. EXCEDRIN [Concomitant]
  6. ALEVE [Concomitant]

REACTIONS (1)
  - PELVIC INFLAMMATORY DISEASE [None]
